FAERS Safety Report 22602921 (Version 1)
Quarter: 2023Q2

REPORT INFORMATION
  Report Type: Spontaneous
  Country: JO (occurrence: JO)
  Receive Date: 20230615
  Receipt Date: 20230615
  Transmission Date: 20230722
  Serious: Yes (Other)
  Sender: FDA-Public Use
  Company Number: JO-ABBOTT-2023A-1365164

PATIENT
  Sex: Male

DRUGS (3)
  1. CLARITHROMYCIN [Interacting]
     Active Substance: CLARITHROMYCIN
     Indication: Bronchitis
     Route: 048
  2. BUTAMIRATE CITRATE [Concomitant]
     Active Substance: BUTAMIRATE CITRATE
     Indication: Bronchitis
  3. PANADOL COLD AND FLU [Concomitant]
     Active Substance: ACETAMINOPHEN\CHLORPHENIRAMINE MALEATE\PHENYLEPHRINE HYDROCHLORIDE
     Indication: Bronchitis

REACTIONS (1)
  - Myopathy [Recovered/Resolved]
